FAERS Safety Report 25415690 (Version 1)
Quarter: 2025Q2

REPORT INFORMATION
  Report Type: Spontaneous
  Country: GB (occurrence: GB)
  Receive Date: 20250610
  Receipt Date: 20250610
  Transmission Date: 20250716
  Serious: Yes (Other)
  Sender: CELLTRION
  Company Number: None

PATIENT

DRUGS (6)
  1. YUFLYMA [Suspect]
     Active Substance: ADALIMUMAB-AATY
     Indication: Adverse drug reaction
  2. YUFLYMA [Suspect]
     Active Substance: ADALIMUMAB-AATY
     Indication: Crohn^s disease
  3. PREGABALIN [Concomitant]
     Active Substance: PREGABALIN
     Indication: Adverse drug reaction
  4. PREGABALIN [Concomitant]
     Active Substance: PREGABALIN
     Indication: Back pain
  5. PREGABALIN [Concomitant]
     Active Substance: PREGABALIN
     Indication: Arthralgia
  6. FLUOXETINE [Concomitant]
     Active Substance: FLUOXETINE HYDROCHLORIDE
     Indication: Anxiety

REACTIONS (2)
  - Acne cystic [Not Recovered/Not Resolved]
  - Intentional product use issue [Unknown]

NARRATIVE: CASE EVENT DATE: 20250330
